FAERS Safety Report 24285983 (Version 2)
Quarter: 2024Q3

REPORT INFORMATION
  Report Type: Spontaneous
  Country: GB (occurrence: GB)
  Receive Date: 20240905
  Receipt Date: 20240913
  Transmission Date: 20241016
  Serious: Yes (Hospitalization, Other)
  Sender: PFIZER
  Company Number: GB-PFIZER INC-202400248688

PATIENT
  Age: 49 Year
  Sex: Female

DRUGS (13)
  1. HYDROCORTISONE SODIUM SUCCINATE [Interacting]
     Active Substance: HYDROCORTISONE SODIUM SUCCINATE
     Dosage: 400 MG, DAILY
     Route: 042
  2. MORPHINE SULFATE [Suspect]
     Active Substance: MORPHINE SULFATE
     Dosage: UNK
     Route: 042
  3. VECURONIUM BROMIDE [Interacting]
     Active Substance: VECURONIUM BROMIDE
     Dosage: 6 MG, HOURLY
  4. SUCCINYLCHOLINE CHLORIDE [Interacting]
     Active Substance: SUCCINYLCHOLINE CHLORIDE
     Dosage: UNK
  5. ETOMIDATE [Concomitant]
     Active Substance: ETOMIDATE
     Route: 042
  6. PROPOFOL [Concomitant]
     Active Substance: PROPOFOL
     Route: 042
  7. MIDAZOLAM [Concomitant]
     Active Substance: MIDAZOLAM
     Dosage: UNK
     Route: 042
  8. CEFUROXIME [Concomitant]
     Active Substance: CEFUROXIME
     Dosage: UNK
     Route: 042
  9. FRAGMIN [Concomitant]
     Active Substance: DALTEPARIN SODIUM
     Dosage: UNK
     Route: 042
  10. RANITIDINE [Concomitant]
     Active Substance: RANITIDINE
     Dosage: UNK
     Route: 042
  11. EPINEPHRINE HYDROCHLORIDE [Concomitant]
     Active Substance: EPINEPHRINE HYDROCHLORIDE
     Dosage: UNK
     Route: 042
  12. ALBUTEROL [Concomitant]
     Active Substance: ALBUTEROL
     Dosage: UNK
     Route: 042
  13. ATROVENT [Concomitant]
     Active Substance: IPRATROPIUM BROMIDE
     Dosage: UNK
     Route: 045

REACTIONS (3)
  - Drug interaction [Recovering/Resolving]
  - Rhabdomyolysis [Recovering/Resolving]
  - Acute kidney injury [Recovering/Resolving]
